FAERS Safety Report 5066707-0 (Version None)
Quarter: 2006Q3

REPORT INFORMATION
  Report Type: 
  Country: None (occurrence: None)
  Receive Date: 20060801
  Receipt Date: 20060726
  Transmission Date: 20061208
  Serious: Yes (Hospitalization)
  Sender: FDA-Public Use
  Company Number: IT-GLAXOSMITHKLINE-B0432520A

PATIENT
  Age: 74 Year
  Sex: Male

DRUGS (8)
  1. LANOXIN [Suspect]
     Dosage: .13MG PER DAY
     Route: 048
     Dates: start: 20060202
  2. AMLODIPINE [Concomitant]
     Dosage: 10MG PER DAY
     Route: 048
  3. CANRENONE [Concomitant]
     Dosage: 100MG PER DAY
     Route: 048
     Dates: start: 20060215
  4. ENALAPRIL MALEATE + HYDROCHLOROTHIAZIDE [Concomitant]
     Route: 048
  5. FUROSEMIDE [Concomitant]
     Dosage: 25MG PER DAY
     Route: 048
  6. GLIBENCLAMIDE + METFORMIN [Concomitant]
     Route: 048
  7. GLYCEROL TRINITRATE [Concomitant]
     Indication: ANGINA PECTORIS
     Route: 048
  8. WARFARIN SODIUM [Concomitant]
     Dosage: 5MG PER DAY
     Route: 048

REACTIONS (5)
  - ABDOMINAL PAIN UPPER [None]
  - ASTHENIA [None]
  - DECREASED APPETITE [None]
  - PALLOR [None]
  - VOMITING [None]
